FAERS Safety Report 17073480 (Version 1)
Quarter: 2019Q4

REPORT INFORMATION
  Report Type: Spontaneous
  Country: CN (occurrence: CN)
  Receive Date: 20191126
  Receipt Date: 20191126
  Transmission Date: 20200122
  Serious: Yes (Hospitalization)
  Sender: FDA-Public Use
  Company Number: CN-ROCHE-2476376

PATIENT
  Age: 39 Year
  Sex: Female
  Weight: 58.5 kg

DRUGS (9)
  1. DOCETAXEL. [Suspect]
     Active Substance: DOCETAXEL
     Indication: BREAST CANCER
     Route: 041
     Dates: start: 20191017
  2. AMIFOSTINE. [Suspect]
     Active Substance: AMIFOSTINE
     Indication: BREAST CANCER
     Route: 041
     Dates: start: 20191017
  3. HERCEPTIN [Suspect]
     Active Substance: TRASTUZUMAB
     Indication: BREAST CANCER
     Route: 041
     Dates: start: 20191017
  4. SODIUM CHLORIDE 0.9% [Concomitant]
     Active Substance: SODIUM CHLORIDE
     Route: 065
  5. LENTINAN [Suspect]
     Active Substance: LENTINAN
     Indication: BREAST CANCER
     Route: 041
     Dates: start: 20191017
  6. GLUCOSE [Concomitant]
     Active Substance: DEXTROSE
     Route: 065
  7. SODIUM CHLORIDE 0.9% [Concomitant]
     Active Substance: SODIUM CHLORIDE
     Route: 065
  8. GLUCOSE [Concomitant]
     Active Substance: DEXTROSE
     Route: 065
  9. CARBOPLATIN. [Suspect]
     Active Substance: CARBOPLATIN
     Indication: BREAST CANCER
     Route: 041
     Dates: start: 20191017

REACTIONS (1)
  - Bone marrow failure [Recovering/Resolving]

NARRATIVE: CASE EVENT DATE: 20191109
